FAERS Safety Report 18207478 (Version 3)
Quarter: 2020Q4

REPORT INFORMATION
  Report Type: Spontaneous
  Country: ES (occurrence: ES)
  Receive Date: 20200828
  Receipt Date: 20201014
  Transmission Date: 20210113
  Serious: Yes (Hospitalization, Other)
  Sender: FDA-Public Use
  Company Number: ES-PFIZER INC-2020325552

PATIENT
  Sex: Male

DRUGS (3)
  1. GENOTONORM KABIPEN [Suspect]
     Active Substance: SOMATROPIN
     Dosage: UNK
     Route: 058
  2. ENALAPRIL [Concomitant]
     Active Substance: ENALAPRIL
     Indication: CARDIAC DISORDER
     Dosage: UNK
  3. GENOTONORM KABIPEN [Suspect]
     Active Substance: SOMATROPIN
     Indication: GROWTH HORMONE DEFICIENCY
     Dosage: BETWEEN 1.5 AND 1.8 MG
     Route: 058
     Dates: start: 20151203

REACTIONS (7)
  - Aortic stenosis [Recovered/Resolved]
  - Poor quality device used [Unknown]
  - Product odour abnormal [Unknown]
  - Device issue [Unknown]
  - Device leakage [Unknown]
  - Electrocardiogram QT prolonged [Unknown]
  - Arrhythmia [Unknown]

NARRATIVE: CASE EVENT DATE: 202002
